FAERS Safety Report 17922759 (Version 1)
Quarter: 2020Q2

REPORT INFORMATION
  Report Type: Spontaneous
  Country: US (occurrence: US)
  Receive Date: 20200621
  Receipt Date: 20200621
  Transmission Date: 20200714
  Serious: No
  Sender: FDA-Public Use
  Company Number: None

PATIENT
  Age: 63 Year
  Sex: Male

DRUGS (1)
  1. VENLAFAXINE (VENLAFAXINE HCL 75MG CAP, SA) [Suspect]
     Active Substance: VENLAFAXINE HYDROCHLORIDE
     Indication: DEPRESSION
     Dates: start: 20190406, end: 20191018

REACTIONS (2)
  - Bradycardia [None]
  - Orthostatic hypotension [None]

NARRATIVE: CASE EVENT DATE: 20191018
